FAERS Safety Report 24902576 (Version 3)
Quarter: 2025Q3

REPORT INFORMATION
  Report Type: Report from Study
  Country: KR (occurrence: KR)
  Receive Date: 20250130
  Receipt Date: 20250717
  Transmission Date: 20251021
  Serious: Yes (Hospitalization)
  Sender: SUNOVION
  Company Number: KR-BIAL-BIAL-17337

PATIENT

DRUGS (34)
  1. ESLICARBAZEPINE ACETATE [Suspect]
     Active Substance: ESLICARBAZEPINE ACETATE
     Indication: Epilepsy
     Dosage: 400 MILLIGRAM, QD
     Route: 048
     Dates: start: 20240528, end: 20240528
  2. ESLICARBAZEPINE ACETATE [Suspect]
     Active Substance: ESLICARBAZEPINE ACETATE
     Dosage: 500 MILLIGRAM, QD
     Route: 048
     Dates: start: 20240529, end: 20240724
  3. ESLICARBAZEPINE ACETATE [Suspect]
     Active Substance: ESLICARBAZEPINE ACETATE
     Dosage: 600 MILLIGRAM, QD
     Route: 048
     Dates: start: 20240725, end: 20241103
  4. ESLICARBAZEPINE ACETATE [Suspect]
     Active Substance: ESLICARBAZEPINE ACETATE
     Dosage: 800 MILLIGRAM, QD
     Route: 048
     Dates: start: 20241104, end: 20241109
  5. ESLICARBAZEPINE ACETATE [Suspect]
     Active Substance: ESLICARBAZEPINE ACETATE
     Dosage: 1000 MILLIGRAM, QD
     Route: 048
     Dates: start: 20241110, end: 20241111
  6. ESLICARBAZEPINE ACETATE [Suspect]
     Active Substance: ESLICARBAZEPINE ACETATE
     Dosage: 800 MILLIGRAM, QD
     Route: 048
     Dates: start: 20241112, end: 20241112
  7. ESLICARBAZEPINE ACETATE [Suspect]
     Active Substance: ESLICARBAZEPINE ACETATE
     Dosage: 1000 MILLIGRAM, QD
     Route: 048
     Dates: start: 20241113
  8. KEPPRA [Concomitant]
     Active Substance: LEVETIRACETAM
     Indication: Epilepsy
     Dosage: 1 DOSAGE FORM, BID
     Route: 048
     Dates: start: 20240513, end: 20241105
  9. KEPPRA [Concomitant]
     Active Substance: LEVETIRACETAM
     Indication: Epilepsy
     Dosage: 1 DOSAGE FORM, BID
     Route: 048
     Dates: start: 20240528
  10. CLOBAZAM [Concomitant]
     Active Substance: CLOBAZAM
     Indication: Epilepsy
     Dosage: 5 MILLIGRAM, BID
     Route: 048
     Dates: start: 20240528, end: 20241104
  11. MEDILAC DS [Concomitant]
     Indication: Gastritis
     Dosage: 1 DOSAGE FORM, BID
     Route: 048
     Dates: start: 20240528
  12. CYANOCOBALAMIN\PYRIDOXINE HYDROCHLORIDE\THIAMINE [Concomitant]
     Active Substance: CYANOCOBALAMIN\PYRIDOXINE HYDROCHLORIDE\THIAMINE
     Indication: Prophylaxis
     Dosage: 1 DOSAGE FORM, BID
     Route: 048
     Dates: start: 20240528
  13. GASTER [Concomitant]
     Active Substance: FAMOTIDINE
     Indication: Gastritis
     Dosage: 1 DOSAGE FORM, BID
     Route: 048
     Dates: start: 20240528
  14. SOLONDO [Concomitant]
     Indication: Encephalitis
     Dosage: 1 DOSAGE FORM, BID
     Route: 048
     Dates: start: 20240528, end: 20240529
  15. SOLONDO [Concomitant]
     Dosage: 1 DOSAGE FORM, TID
     Route: 048
     Dates: start: 20240604, end: 20240703
  16. SOLONDO [Concomitant]
     Dosage: 1 DOSAGE FORM, BID
     Route: 048
     Dates: start: 20240704
  17. POLYBUTINE [Concomitant]
     Indication: Prophylaxis
     Dosage: 1 DOSAGE FORM, TID
     Route: 048
     Dates: start: 20240603
  18. RAMNOS [Concomitant]
     Indication: Prophylaxis
     Dosage: 1 DOSAGE FORM, BID
     Route: 048
     Dates: start: 20240528, end: 20240724
  19. RAMNOS [Concomitant]
     Dosage: 2 DOSAGE FORM, BID
     Route: 048
     Dates: start: 20240725
  20. FERROUS SULFATE [Concomitant]
     Active Substance: FERROUS SULFATE
     Indication: Prophylaxis
     Dosage: 1 DOSAGE FORM, QD
     Route: 048
     Dates: start: 20240528, end: 20240813
  21. FERROUS SULFATE [Concomitant]
     Active Substance: FERROUS SULFATE
     Dosage: 1 DOSAGE FORM, BID
     Route: 048
     Dates: start: 20240814
  22. POLYETHYLENE GLYCOL 4000 [Concomitant]
     Active Substance: POLYETHYLENE GLYCOL 4000
     Indication: Prophylaxis
     Dosage: 1 DOSAGE FORM, QD (POWDER)
     Route: 048
     Dates: start: 20240528, end: 20240528
  23. POLYETHYLENE GLYCOL 4000 [Concomitant]
     Active Substance: POLYETHYLENE GLYCOL 4000
     Dosage: 1 DOSAGE FORM, BID
     Route: 048
     Dates: start: 20240529, end: 20240529
  24. CIRCATONIN PR [Concomitant]
     Indication: Prophylaxis
     Dosage: 1 DOSAGE FORM, QD
     Route: 048
     Dates: start: 20240530
  25. DEFLAZACORT [Concomitant]
     Active Substance: DEFLAZACORT
     Indication: Mitochondrial encephalomyopathy
     Dosage: 1 DOSAGE FORM, BID
     Route: 048
     Dates: start: 20240725
  26. DEXAMETHASONE [Concomitant]
     Active Substance: DEXAMETHASONE
     Indication: Mitochondrial cytopathy
     Route: 042
     Dates: start: 20240530, end: 20240531
  27. DEXAMETHASONE [Concomitant]
     Active Substance: DEXAMETHASONE
     Dosage: 1 DOSAGE FORM, TID
     Route: 042
     Dates: start: 20240601, end: 20240601
  28. DEXAMETHASONE [Concomitant]
     Active Substance: DEXAMETHASONE
     Dosage: 1 DOSAGE FORM, BID
     Route: 042
     Dates: start: 20240602, end: 20240602
  29. DEXAMETHASONE [Concomitant]
     Active Substance: DEXAMETHASONE
     Dosage: 1 DOSAGE FORM, QD
     Route: 042
     Dates: start: 20240603, end: 20240603
  30. VENOFERRUM [Concomitant]
     Indication: Prophylaxis
     Dosage: 0.85 DOSAGE FORM, QD
     Route: 042
     Dates: start: 20240813, end: 20240813
  31. HYDROCORTISONE [Concomitant]
     Active Substance: HYDROCORTISONE
     Indication: Immunosuppression
     Dosage: 1 DOSAGE FORM, BID
     Route: 048
     Dates: start: 20240909
  32. SUDAFED [Concomitant]
     Active Substance: PSEUDOEPHEDRINE HYDROCHLORIDE
     Indication: Prophylaxis
     Dosage: 1 DOSAGE FORM, TID
     Route: 048
     Dates: start: 20241107
  33. CAROL F [Concomitant]
     Indication: Prophylaxis
     Dosage: 1 DOSAGE FORM, TID
     Route: 048
     Dates: start: 20241107, end: 20241112
  34. MUCOPECT [Concomitant]
     Indication: Prophylaxis
     Dosage: 1 DOSAGE FORM, TID
     Route: 048
     Dates: start: 20241108

REACTIONS (4)
  - Bronchitis [Recovered/Resolved]
  - Epilepsy [Recovered/Resolved]
  - Epilepsy [Recovered/Resolved]
  - Hyponatraemia [Recovered/Resolved]

NARRATIVE: CASE EVENT DATE: 20240810
